FAERS Safety Report 21765398 (Version 4)
Quarter: 2023Q1

REPORT INFORMATION
  Report Type: Report from Study
  Country: CN (occurrence: None)
  Receive Date: 20221222
  Receipt Date: 20230221
  Transmission Date: 20230418
  Serious: Yes (Hospitalization)
  Sender: FDA-Public Use
  Company Number: CN-ROCHE-3246000

PATIENT
  Age: 61 Year
  Sex: Male
  Weight: 74.5 kg

DRUGS (7)
  1. ATEZOLIZUMAB [Suspect]
     Active Substance: ATEZOLIZUMAB
     Indication: Hepatocellular carcinoma
     Dosage: DOSE LAST STUDY DRUG ADMIN PRIOR SAE IS 1200 MG?MOST RECENT DOSE OF STUDY DRUG PRIOR TO AE + SAE 14/
     Route: 041
     Dates: start: 20220601
  2. BEVACIZUMAB [Suspect]
     Active Substance: BEVACIZUMAB
     Indication: Hepatocellular carcinoma
     Dosage: DOSE LAST STUDY DRUG ADMIN PRIOR SAE IS 1117.5 MG?MOST RECENT DOSE OF STUDY DRUG PRIOR TO AE + SAE 1
     Route: 042
     Dates: start: 20220601
  3. ENTECAVIR [Concomitant]
     Active Substance: ENTECAVIR
     Indication: Hepatitis B
     Dates: start: 20210429
  4. FELODIPINE [Concomitant]
     Active Substance: FELODIPINE
     Indication: Hypertension
     Dates: start: 20220415
  5. PHOSPHOLIPID [Concomitant]
     Active Substance: PHOSPHOLIPID
     Dates: start: 20220513
  6. HETROMBOPAG ETHANOLAMINE [Concomitant]
     Indication: Platelet count decreased
     Dates: start: 20221031, end: 20221106
  7. THROMBOPOIETIN [Concomitant]
     Active Substance: THROMBOPOIETIN
     Indication: Platelet count decreased
     Dates: start: 20221031, end: 20221106

REACTIONS (1)
  - Hydrocele [Recovered/Resolved]

NARRATIVE: CASE EVENT DATE: 20221128
